FAERS Safety Report 14752100 (Version 1)
Quarter: 2018Q2

REPORT INFORMATION
  Report Type: Spontaneous
  Country: US (occurrence: US)
  Receive Date: 20180406
  Receipt Date: 20180406
  Transmission Date: 20180711
  Serious: Yes (Hospitalization)
  Sender: FDA-Public Use
  Company Number: None

PATIENT
  Age: 48 Year
  Sex: Female

DRUGS (1)
  1. OCTREOTIDE ACET MDV/INJ 5ML 1 VIAL 0.2MG [Suspect]
     Active Substance: OCTREOTIDE ACETATE

REACTIONS (3)
  - Anaemia [None]
  - Pulmonary thrombosis [None]
  - Pulmonary embolism [None]

NARRATIVE: CASE EVENT DATE: 20180329
